FAERS Safety Report 9840734 (Version 2)
Quarter: 2014Q1

REPORT INFORMATION
  Report Type: Spontaneous
  Country: US (occurrence: US)
  Receive Date: 20140124
  Receipt Date: 20140127
  Transmission Date: 20141002
  Serious: Yes (Death, Hospitalization)
  Sender: FDA-Public Use
  Company Number: US-BEH-2014040131

PATIENT
  Age: 63 Year
  Sex: Female

DRUGS (12)
  1. HIZENTRA [Suspect]
     Indication: IMMUNODEFICIENCY COMMON VARIABLE
     Dosage: LAST GIVEN OCT 2013
     Route: 058
  2. ALLOPURINOL [Concomitant]
  3. ASA [Concomitant]
  4. MVI [Concomitant]
  5. LASIX [Concomitant]
  6. METOPROLOL [Concomitant]
  7. REMERON [Concomitant]
  8. OMEPRAZOLE [Concomitant]
  9. RITALIN [Concomitant]
  10. VALTREX [Concomitant]
  11. LISINOPRIL [Concomitant]
  12. AUGMENTIN [Concomitant]

REACTIONS (2)
  - Sepsis [Fatal]
  - Renal failure acute [Fatal]
